FAERS Safety Report 21637398 (Version 1)
Quarter: 2022Q4

REPORT INFORMATION
  Report Type: Report from Study
  Country: US (occurrence: US)
  Receive Date: 20221124
  Receipt Date: 20221124
  Transmission Date: 20230112
  Serious: No
  Sender: FDA-Public Use
  Company Number: US-ABBVIE-22K-163-4418080-00

PATIENT
  Age: 72 Year
  Sex: Female

DRUGS (8)
  1. IMBRUVICA [Suspect]
     Active Substance: IBRUTINIB
     Indication: Chest pain
     Dosage: FORM STRENGTH: 420 MG
     Route: 048
     Dates: start: 20220517, end: 20220702
  2. IMBRUVICA [Suspect]
     Active Substance: IBRUTINIB
     Indication: Chest pain
     Dosage: FORM STRENGTH: 420 MG
     Route: 048
  3. IMBRUVICA [Suspect]
     Active Substance: IBRUTINIB
     Indication: Chest pain
     Dosage: FORM STRENGTH: 420 MG
     Route: 048
  4. ESTRACE [Concomitant]
     Active Substance: ESTRADIOL
     Indication: Hysterectomy
     Dates: start: 1993
  5. MODERNA COVID-19 VACCINE [Concomitant]
     Active Substance: ELASOMERAN
     Indication: COVID-19 immunisation
     Dosage: TIME INTERVAL: 1 TOTAL: 1ST DOSE, ONE IN ONCE
     Route: 030
     Dates: start: 2021, end: 2021
  6. MODERNA COVID-19 VACCINE [Concomitant]
     Active Substance: ELASOMERAN
     Indication: COVID-19 immunisation
     Dosage: TIME INTERVAL: 1 TOTAL: 2ND DOSE, ONE IN ONCE
     Route: 030
     Dates: start: 2021, end: 2021
  7. MODERNA COVID-19 VACCINE [Concomitant]
     Active Substance: ELASOMERAN
     Indication: COVID-19 immunisation
     Dosage: TIME INTERVAL: 1 TOTAL: 3RD DOSE, ONE IN ONCE
     Route: 030
     Dates: start: 2022, end: 2022
  8. TRAMADOL [Suspect]
     Active Substance: TRAMADOL
     Indication: Product used for unknown indication

REACTIONS (17)
  - Fatigue [Unknown]
  - Dry mouth [Unknown]
  - Paranasal sinus discomfort [Unknown]
  - General symptom [Recovering/Resolving]
  - Hypersomnia [Unknown]
  - Blood urine present [Recovering/Resolving]
  - Fatigue [Not Recovered/Not Resolved]
  - Myalgia [Not Recovered/Not Resolved]
  - Petechiae [Not Recovered/Not Resolved]
  - Contusion [Unknown]
  - Pyrexia [Unknown]
  - Nausea [Unknown]
  - Musculoskeletal pain [Recovered/Resolved with Sequelae]
  - Lip swelling [Unknown]
  - Anxiety [Unknown]
  - Hypoaesthesia oral [Recovered/Resolved]
  - Toxicity to various agents [Unknown]

NARRATIVE: CASE EVENT DATE: 20220325
